FAERS Safety Report 21679709 (Version 3)
Quarter: 2023Q4

REPORT INFORMATION
  Report Type: Report from Study
  Country: US (occurrence: US)
  Receive Date: 20221205
  Receipt Date: 20231116
  Transmission Date: 20240110
  Serious: Yes (Hospitalization, Other)
  Sender: FDA-Public Use
  Company Number: US-ABBVIE-4222515

PATIENT
  Sex: Female

DRUGS (2)
  1. IMBRUVICA [Suspect]
     Active Substance: IBRUTINIB
     Indication: Waldenstrom^s macroglobulinaemia
     Dosage: FORM STRENGTH: 280 MG
     Route: 048
     Dates: start: 202112
  2. IMBRUVICA [Suspect]
     Active Substance: IBRUTINIB
     Indication: Waldenstrom^s macroglobulinaemia
     Dosage: FORM STRENGTH: 280 MG
     Route: 048
     Dates: start: 202201

REACTIONS (8)
  - Fall [Unknown]
  - Spinal stenosis [Unknown]
  - Macular degeneration [Unknown]
  - Altered visual depth perception [Unknown]
  - Upper limb fracture [Unknown]
  - Nail disorder [Unknown]
  - Loss of personal independence in daily activities [Unknown]
  - Swelling [Unknown]

NARRATIVE: CASE EVENT DATE: 20220101
